FAERS Safety Report 8054248-8 (Version None)
Quarter: 2012Q1

REPORT INFORMATION
  Report Type: 
  Country: None (occurrence: None)
  Receive Date: 20120118
  Receipt Date: 20120109
  Transmission Date: 20120608
  Serious: Yes (Other)
  Sender: FDA-Public Use
  Company Number: PHHY2009CA56295

PATIENT
  Sex: Male

DRUGS (6)
  1. CHEMOTHERAPEUTICS NOS [Concomitant]
     Dates: start: 20100623
  2. SANDOSTATIN LAR [Suspect]
     Dosage: 60 MG, EVERY 4 WEEKS
     Route: 030
  3. SANDOSTATIN LAR [Suspect]
     Dosage: 60 MG, EVERY 2 WEEKS
     Route: 030
     Dates: start: 20011220
  4. SANDOSTATIN LAR [Suspect]
     Indication: CARCINOID TUMOUR
     Dosage: 30 MG, EVERY 2 WEEKS
     Route: 030
     Dates: start: 20011220, end: 20050930
  5. SANDOSTATIN LAR [Suspect]
     Dosage: 60 MG, QMO
     Route: 030
  6. SANDOSTATIN LAR [Suspect]
     Dosage: 60 MG, EVERY 2 WEEKS
     Route: 048

REACTIONS (26)
  - ASTHENIA [None]
  - CHILLS [None]
  - EAR PAIN [None]
  - HYPOTENSION [None]
  - HYPERHIDROSIS [None]
  - MUSCULOSKELETAL PAIN [None]
  - HYPOAESTHESIA [None]
  - BACK PAIN [None]
  - FEELING HOT [None]
  - COUGH [None]
  - DIZZINESS [None]
  - PAIN IN EXTREMITY [None]
  - SINUS CONGESTION [None]
  - BONE PAIN [None]
  - INFLUENZA LIKE ILLNESS [None]
  - EAR CONGESTION [None]
  - ARTHRALGIA [None]
  - PAIN OF SKIN [None]
  - NECK PAIN [None]
  - PAIN [None]
  - CHEST PAIN [None]
  - NAUSEA [None]
  - HEADACHE [None]
  - FATIGUE [None]
  - ABDOMINAL PAIN [None]
  - DYSPNOEA [None]
